FAERS Safety Report 12332052 (Version 1)
Quarter: 2016Q2

REPORT INFORMATION
  Report Type: Spontaneous
  Country: US (occurrence: US)
  Receive Date: 20160504
  Receipt Date: 20160504
  Transmission Date: 20160815
  Serious: Yes (Other)
  Sender: FDA-Public Use
  Company Number: US-FRESENIUS KABI-FK201602440

PATIENT
  Age: 24 Year
  Sex: Male

DRUGS (2)
  1. METHOTREXATE (MANUFACTURER UNKNOWN) [Suspect]
     Active Substance: METHOTREXATE
     Indication: CROHN^S DISEASE
     Route: 048
  2. ADALIMUMAB [Suspect]
     Active Substance: ADALIMUMAB
     Indication: CROHN^S DISEASE
     Dates: start: 201403

REACTIONS (1)
  - Molluscum contagiosum [Recovered/Resolved]
